FAERS Safety Report 4334183-9 (Version None)
Quarter: 2004Q2

REPORT INFORMATION
  Report Type: 
  Country: None (occurrence: None)
  Receive Date: 20040405
  Receipt Date: 20040326
  Transmission Date: 20050107
  Serious: Yes (Hospitalization)
  Sender: FDA-Public Use
  Company Number: US-JNJFOC-20040306558

PATIENT
  Age: 34 Year
  Sex: Female

DRUGS (1)
  1. RISPERDAL CONSTA [Suspect]
     Indication: SCHIZOPHRENIA
     Dosage: 25 MG, 1 IN  WEEK, INTRA-MUSCULAR
     Route: 030
     Dates: start: 20031201

REACTIONS (2)
  - ANGER [None]
  - IRRITABILITY [None]
